FAERS Safety Report 16169492 (Version 1)
Quarter: 2019Q2

REPORT INFORMATION
  Report Type: Spontaneous
  Country: US (occurrence: US)
  Receive Date: 20190406
  Receipt Date: 20190406
  Transmission Date: 20190711
  Serious: Yes (Disabling)
  Sender: FDA-Public Use
  Company Number: None

PATIENT
  Age: 52 Year
  Sex: Female
  Weight: 69.75 kg

DRUGS (1)
  1. DUPIXENT [Suspect]
     Active Substance: DUPILUMAB
     Indication: ASTHMA
     Dosage: ?          QUANTITY:2 INJECTION(S);OTHER FREQUENCY:2 SHOTS ONCE;?
     Route: 058
     Dates: start: 20190322, end: 20190322

REACTIONS (9)
  - Influenza like illness [None]
  - Injection site pain [None]
  - Eye irritation [None]
  - Palpitations [None]
  - Lymphadenopathy [None]
  - Bladder pain [None]
  - Dry eye [None]
  - Vulvovaginal pain [None]
  - Ocular hyperaemia [None]

NARRATIVE: CASE EVENT DATE: 20190322
